FAERS Safety Report 18622160 (Version 1)
Quarter: 2020Q4

REPORT INFORMATION
  Report Type: Spontaneous
  Country: US (occurrence: US)
  Receive Date: 20201216
  Receipt Date: 20201216
  Transmission Date: 20210114
  Serious: No
  Sender: FDA-Public Use
  Company Number: US-B.I. PHARMACEUTICALS,INC./RIDGEFIELD-2020-BI-069014

PATIENT
  Age: 83 Year
  Sex: Female

DRUGS (6)
  1. SYNTHROID [Concomitant]
     Active Substance: LEVOTHYROXINE SODIUM
     Indication: HYPOTHYROIDISM
     Dosage: 125 MCG PO ONCE A DAY.
     Route: 048
  2. AMLODIPINE [Concomitant]
     Active Substance: AMLODIPINE BESYLATE
     Indication: HYPERTENSION
     Dosage: 2.5 MG PO TWICE A DAY
     Route: 048
  3. LISINOPRIL. [Concomitant]
     Active Substance: LISINOPRIL
     Indication: HYPERTENSION
     Dosage: 20 MG PO ONCE A DAY
     Route: 048
  4. JARDIANCE [Suspect]
     Active Substance: EMPAGLIFLOZIN
     Indication: CARDIOVASCULAR EVENT PROPHYLAXIS
     Dosage: 10 MG PO ONCE A DAY
     Route: 048
     Dates: start: 20201213, end: 20201213
  5. JARDIANCE [Suspect]
     Active Substance: EMPAGLIFLOZIN
     Indication: TYPE 2 DIABETES MELLITUS
     Dosage: 10 MG PO ONCE A DAY
     Route: 048
     Dates: start: 20201116, end: 20201122
  6. LORATADINE. [Concomitant]
     Active Substance: LORATADINE
     Indication: SEASONAL ALLERGY
     Dosage: 10 MG PO ONCE A DAY
     Route: 048

REACTIONS (4)
  - Eye swelling [Not Recovered/Not Resolved]
  - Depression [Recovered/Resolved]
  - Ocular hyperaemia [Not Recovered/Not Resolved]
  - Eye pruritus [Not Recovered/Not Resolved]

NARRATIVE: CASE EVENT DATE: 20201119
